FAERS Safety Report 5982569-9 (Version None)
Quarter: 2008Q4

REPORT INFORMATION
  Report Type: 
  Country: None (occurrence: None)
  Receive Date: 20081208
  Receipt Date: 20081127
  Transmission Date: 20090506
  Serious: Yes (Other)
  Sender: FDA-Public Use
  Company Number: PHHY2008DE29830

PATIENT
  Sex: Female
  Weight: 60 kg

DRUGS (4)
  1. ZOMETA [Suspect]
     Indication: METASTASES TO BONE
     Dosage: 4 MG EVERY 4 WEEKS
     Route: 042
     Dates: start: 20020601, end: 20041101
  2. PAMIDRONATE DISODIUM [Suspect]
     Indication: METASTASES TO BONE
     Dosage: 60MG EVERY 4 WEEKS
     Route: 042
     Dates: start: 20010301, end: 20020501
  3. PAMIDRONATE DISODIUM [Suspect]
     Dosage: 90 MG EVERY 4 WEEKS
     Route: 042
     Dates: start: 20041201, end: 20050301
  4. DEXAMETHASONE [Concomitant]
     Indication: PLASMACYTOMA
     Dosage: UNK
     Dates: start: 20030601, end: 20041001

REACTIONS (1)
  - OSTEONECROSIS [None]
